FAERS Safety Report 10502976 (Version 6)
Quarter: 2015Q2

REPORT INFORMATION
  Report Type: Report from Study
  Country: US (occurrence: US)
  Receive Date: 20141007
  Receipt Date: 20150422
  Transmission Date: 20150821
  Serious: Yes (Hospitalization, Other)
  Sender: FDA-Public Use
  Company Number: US-ALEXION PHARMACEUTICALS INC-A201403682

PATIENT

DRUGS (2)
  1. SOLIRIS [Suspect]
     Active Substance: ECULIZUMAB
     Dosage: UNK
     Route: 042
  2. SOLIRIS [Suspect]
     Active Substance: ECULIZUMAB
     Indication: PRODUCT USED FOR UNKNOWN INDICATION
     Dosage: UNK, QW
     Route: 042
     Dates: start: 20140918

REACTIONS (5)
  - Blood creatinine increased [Unknown]
  - Oxygen saturation decreased [Recovering/Resolving]
  - Leg amputation [Not Recovered/Not Resolved]
  - Blister [Not Recovered/Not Resolved]
  - Urine output decreased [Unknown]

NARRATIVE: CASE EVENT DATE: 201409
